FAERS Safety Report 9000805 (Version 3)
Quarter: 2013Q1

REPORT INFORMATION
  Report Type: Spontaneous
  Country: JP (occurrence: JP)
  Receive Date: 20130107
  Receipt Date: 20130115
  Transmission Date: 20140127
  Serious: Yes (Death, Other)
  Sender: FDA-Public Use
  Company Number: JP-JNJFOC-20130101663

PATIENT
  Age: 69 Year
  Sex: Male

DRUGS (3)
  1. DOXORUBICIN [Suspect]
     Indication: PANCREATIC CARCINOMA METASTATIC
     Route: 042
  2. DOXORUBICIN [Suspect]
     Indication: PANCREATIC CARCINOMA METASTATIC
     Route: 065
  3. MITOMYCIN C [Suspect]
     Indication: PANCREATIC CARCINOMA METASTATIC
     Route: 065

REACTIONS (4)
  - Metastases to liver [Fatal]
  - Metastases to peritoneum [Unknown]
  - Pancreatic carcinoma recurrent [Unknown]
  - Off label use [Unknown]
